FAERS Safety Report 17904996 (Version 1)
Quarter: 2020Q2

REPORT INFORMATION
  Report Type: Spontaneous
  Country: US (occurrence: US)
  Receive Date: 20200616
  Receipt Date: 20200616
  Transmission Date: 20200714
  Serious: No
  Sender: FDA-Public Use
  Company Number: US-ANIPHARMA-2020-US-009620

PATIENT
  Age: 58 Year
  Sex: 0
  Weight: 77.11 kg

DRUGS (1)
  1. OXYCODONE HYDROCHLORIDE ORAL SOLUTION [Suspect]
     Active Substance: OXYCODONE HYDROCHLORIDE
     Indication: ANALGESIC THERAPY
     Dosage: 20MG EVERY 6 HOURS
     Route: 048
     Dates: start: 20200208, end: 20200508

REACTIONS (3)
  - Dyspnoea [Recovered/Resolved]
  - Throat tightness [Recovered/Resolved]
  - Chest discomfort [Recovered/Resolved]

NARRATIVE: CASE EVENT DATE: 20200208
